FAERS Safety Report 4474071-0 (Version None)
Quarter: 2004Q4

REPORT INFORMATION
  Report Type: 
  Country: None (occurrence: None)
  Receive Date: 20041008
  Receipt Date: 20040922
  Transmission Date: 20050328
  Serious: Yes (Hospitalization, Other)
  Sender: FDA-Public Use
  Company Number: USA040875747

PATIENT
  Age: 87 Year
  Sex: Female
  Weight: 42 kg

DRUGS (5)
  1. ZYPREXA [Suspect]
     Indication: ANXIETY
     Dosage: 2.5 MG DAY
     Dates: start: 20040401
  2. RISPERDAL [Concomitant]
  3. PERCOCET [Concomitant]
  4. XALATAN [Concomitant]
  5. COSOPT [Concomitant]

REACTIONS (1)
  - VENOUS THROMBOSIS LIMB [None]
